FAERS Safety Report 6524326-0 (Version None)
Quarter: 2009Q4

REPORT INFORMATION
  Report Type: 
  Country: None (occurrence: None)
  Receive Date: 20091231
  Receipt Date: 20091221
  Transmission Date: 20100525
  Serious: Yes (Hospitalization)
  Sender: FDA-Public Use
  Company Number: JP-MERCK-0912USA01112

PATIENT
  Age: 65 Year
  Sex: Male
  Weight: 50 kg

DRUGS (8)
  1. PEPCID RPD [Suspect]
     Indication: GASTRIC ULCER
     Route: 048
     Dates: start: 20091005, end: 20091105
  2. ALEVIATIN [Suspect]
     Indication: CONVULSION PROPHYLAXIS
     Route: 048
     Dates: start: 20091005, end: 20091105
  3. LOXOPROFEN [Concomitant]
     Indication: HEADACHE
     Route: 048
     Dates: start: 20091006
  4. SODIUM CHLORIDE [Concomitant]
     Indication: SUPPLEMENTATION THERAPY
     Route: 065
     Dates: start: 20091013, end: 20091020
  5. PHYSIO 140 [Concomitant]
     Indication: NUTRITIONAL SUPPORT
     Route: 065
     Dates: start: 20091001, end: 20091014
  6. LACTEC [Concomitant]
     Indication: HAEMOSTASIS
     Route: 065
     Dates: start: 20091001, end: 20091007
  7. ADONA [Concomitant]
     Indication: HAEMOSTASIS
     Route: 065
     Dates: start: 20091001
  8. TRANSAMIN [Concomitant]
     Indication: HAEMOSTASIS
     Route: 065
     Dates: start: 20091001, end: 20091007

REACTIONS (13)
  - BONE MARROW DISORDER [None]
  - C-REACTIVE PROTEIN INCREASED [None]
  - EOSINOPHIL COUNT INCREASED [None]
  - GRANULOCYTE COUNT DECREASED [None]
  - INFECTION IN AN IMMUNOCOMPROMISED HOST [None]
  - LYMPHOCYTE COUNT INCREASED [None]
  - LYMPHOCYTE MORPHOLOGY ABNORMAL [None]
  - NORMOCHROMIC NORMOCYTIC ANAEMIA [None]
  - ONYCHOMYCOSIS [None]
  - PAIN IN EXTREMITY [None]
  - PYREXIA [None]
  - TINEA INFECTION [None]
  - WHITE BLOOD CELL COUNT DECREASED [None]
